FAERS Safety Report 5150934-8 (Version None)
Quarter: 2006Q4

REPORT INFORMATION
  Report Type: 
  Country: None (occurrence: None)
  Receive Date: 20061115
  Receipt Date: 20061106
  Transmission Date: 20070319
  Serious: Yes (Disabling)
  Sender: FDA-Public Use
  Company Number: US-JNJFOC-20061101480

PATIENT
  Sex: Female

DRUGS (3)
  1. REMICADE [Suspect]
     Indication: CROHN'S DISEASE
     Dosage: Q 6-8 WEEK MAINTENANCE
     Route: 042
  2. FLAGYL [Suspect]
     Indication: DRUG USE FOR UNKNOWN INDICATION
  3. IMURAN [Concomitant]

REACTIONS (2)
  - CONTUSION [None]
  - MOVEMENT DISORDER [None]
